FAERS Safety Report 18400651 (Version 1)
Quarter: 2020Q4

REPORT INFORMATION
  Report Type: Report from Study
  Country: US (occurrence: US)
  Receive Date: 20201019
  Receipt Date: 20201019
  Transmission Date: 20210114
  Serious: Yes (Death)
  Sender: FDA-Public Use
  Company Number: US-JNJFOC-20201012943

PATIENT
  Age: 80 Year
  Sex: Female
  Weight: 66.28 kg

DRUGS (7)
  1. BABY ASPIRIN [Concomitant]
     Active Substance: ASPIRIN
     Dates: start: 20181021
  2. UPTRAVI [Suspect]
     Active Substance: SELEXIPAG
     Indication: PULMONARY ARTERIAL HYPERTENSION
     Route: 048
     Dates: start: 20190418
  3. ATORVASTATIN [Concomitant]
     Active Substance: ATORVASTATIN
     Dates: start: 20181021
  4. CARVELOL [Concomitant]
     Active Substance: CARVEDILOL
  5. UPTRAVI [Suspect]
     Active Substance: SELEXIPAG
     Route: 048
     Dates: start: 20190915, end: 20200301
  6. PRANDIN                            /01393601/ [Concomitant]
     Dates: start: 20181021
  7. LEVEMIR [Concomitant]
     Active Substance: INSULIN DETEMIR
     Dates: start: 20181021

REACTIONS (1)
  - Death [Fatal]

NARRATIVE: CASE EVENT DATE: 20200301
